FAERS Safety Report 9172419 (Version 1)
Quarter: 2013Q1

REPORT INFORMATION
  Report Type: Spontaneous
  Country: NL (occurrence: NL)
  Receive Date: 20130319
  Receipt Date: 20130319
  Transmission Date: 20140127
  Serious: Yes (Other)
  Sender: FDA-Public Use
  Company Number: NL-NICOBRDEVP-2013-04445

PATIENT
  Age: 77 Year
  Sex: Female

DRUGS (1)
  1. LOSARTAN POTASSIUM AND HYDROCHLOROTHIAZIDE [Suspect]
     Indication: HYPERTENSION
     Dosage: UNK, UNKNOWN
     Route: 048

REACTIONS (5)
  - Respiratory distress [Unknown]
  - Myalgia [Unknown]
  - Cough [Unknown]
  - Product substitution issue [None]
  - Product quality issue [None]
